FAERS Safety Report 6502050-8 (Version None)
Quarter: 2009Q4

REPORT INFORMATION
  Report Type: 
  Country: None (occurrence: None)
  Receive Date: 20091214
  Receipt Date: 20091212
  Transmission Date: 20100525
  Serious: Yes (Hospitalization)
  Sender: FDA-Public Use
  Company Number: 1-20885830

PATIENT
  Age: 44 Year
  Sex: Male

DRUGS (2)
  1. COLCRYS [Suspect]
     Indication: GOUTY ARTHRITIS
     Dosage: 0.5MG TWICE DAILY
  2. DISULFIRAM [Suspect]
     Dosage: 200 MG

REACTIONS (12)
  - ALANINE AMINOTRANSFERASE INCREASED [None]
  - ANAEMIA [None]
  - ASPARTATE AMINOTRANSFERASE INCREASED [None]
  - ASTHENIA [None]
  - DRUG INTERACTION [None]
  - HAEMOGLOBIN DECREASED [None]
  - PLATELET COUNT DECREASED [None]
  - PYREXIA [None]
  - RASH ERYTHEMATOUS [None]
  - SKIN EXFOLIATION [None]
  - TACHYCARDIA [None]
  - WHITE BLOOD CELL COUNT DECREASED [None]
